APPROVED DRUG PRODUCT: IBUPROFEN
Active Ingredient: IBUPROFEN
Strength: 400MG
Dosage Form/Route: TABLET;ORAL
Application: A077114 | Product #001
Applicant: L PERRIGO CO
Approved: Jul 18, 2005 | RLD: No | RS: No | Type: DISCN